FAERS Safety Report 5267201-4 (Version None)
Quarter: 2007Q1

REPORT INFORMATION
  Report Type: 
  Country: None (occurrence: None)
  Receive Date: 20070316
  Receipt Date: 20070313
  Transmission Date: 20070707
  Serious: Yes (Death, Life-Threatening, Hospitalization)
  Sender: FDA-Public Use
  Company Number: PT-SANOFI-SYNTHELABO-D01200701096

PATIENT
  Sex: Male
  Weight: 68 kg

DRUGS (4)
  1. SR57746 [Suspect]
     Indication: NEUROLOGICAL SYMPTOM
     Route: 048
     Dates: start: 20060913, end: 20070210
  2. LEUCOVORIN CALCIUM [Suspect]
     Route: 042
     Dates: start: 20070131, end: 20070131
  3. FLUOROURACIL [Suspect]
     Dosage: 400 MG/M?, IV BOLUS D1+D2 FOLLOWED BY 5-FU 2400 MG/M? OVER 46-HOUR CONTINUOUS INFUSION.
     Route: 042
     Dates: start: 20070131, end: 20070131
  4. OXALIPLATIN [Suspect]
     Route: 042
     Dates: start: 20070131, end: 20070131

REACTIONS (1)
  - RESPIRATORY FAILURE [None]
